FAERS Safety Report 25897614 (Version 2)
Quarter: 2025Q4

REPORT INFORMATION
  Report Type: Spontaneous
  Country: EU (occurrence: EU)
  Receive Date: 20251008
  Receipt Date: 20251219
  Transmission Date: 20260118
  Serious: No
  Sender: JOHNSON AND JOHNSON
  Company Number: EU-JNJFOC-20251000055

PATIENT
  Sex: Female

DRUGS (4)
  1. TREMFYA [Suspect]
     Active Substance: GUSELKUMAB
     Indication: Psoriatic arthropathy
     Route: 058
  2. TREMFYA [Suspect]
     Active Substance: GUSELKUMAB
  3. TREMFYA [Suspect]
     Active Substance: GUSELKUMAB
  4. TREMFYA [Suspect]
     Active Substance: GUSELKUMAB

REACTIONS (13)
  - Arthralgia [Unknown]
  - Pain in extremity [Unknown]
  - Tendon pain [Unknown]
  - Tendon disorder [Unknown]
  - Haemangioma of liver [Unknown]
  - Neck pain [Unknown]
  - Back pain [Unknown]
  - Gastritis [Unknown]
  - Nausea [Unknown]
  - Vomiting [Unknown]
  - Diarrhoea [Unknown]
  - Haemorrhoids [Unknown]
  - Asthenia [Unknown]
